FAERS Safety Report 7746239-9 (Version None)
Quarter: 2011Q3

REPORT INFORMATION
  Report Type: 
  Country: None (occurrence: None)
  Receive Date: 20110913
  Receipt Date: 20110908
  Transmission Date: 20111222
  Serious: Yes (Death, Disabling)
  Sender: FDA-Public Use
  Company Number: GB-SANOFI-AVENTIS-2011SA031889

PATIENT
  Age: 49 Year
  Sex: Female
  Weight: 74.9 kg

DRUGS (6)
  1. LANSOPRAZOLE [Concomitant]
     Route: 048
     Dates: start: 20101001
  2. LANSOPRAZOLE [Concomitant]
     Indication: ILL-DEFINED DISORDER
     Route: 048
     Dates: start: 20101001
  3. DOCETAXEL [Suspect]
     Route: 042
     Dates: start: 20101216, end: 20110211
  4. XELODA [Suspect]
     Route: 048
     Dates: start: 20100317, end: 20110428
  5. AVASTIN [Suspect]
     Route: 042
     Dates: start: 20110106, end: 20110211
  6. DEXAMETHASONE [Concomitant]
     Route: 048
     Dates: start: 20101216, end: 20110211

REACTIONS (2)
  - PALMAR-PLANTAR ERYTHRODYSAESTHESIA SYNDROME [None]
  - DEATH [None]
